FAERS Safety Report 22298505 (Version 3)
Quarter: 2023Q2

REPORT INFORMATION
  Report Type: Spontaneous
  Country: US (occurrence: US)
  Receive Date: 20230509
  Receipt Date: 20230615
  Transmission Date: 20230722
  Serious: Yes (Other)
  Sender: FDA-Public Use
  Company Number: US-PFIZER INC-PV202300012427

PATIENT
  Age: 68 Year
  Sex: Female

DRUGS (1)
  1. IBRANCE [Suspect]
     Active Substance: PALBOCICLIB
     Indication: Neoplasm malignant
     Dosage: 75 MG, CYCLIC (TAKE EVERY 14 DAYS THEN OFF 14 DAYS)

REACTIONS (6)
  - Blindness [Unknown]
  - Gait inability [Unknown]
  - Platelet count decreased [Unknown]
  - Brain fog [Unknown]
  - Off label use [Unknown]
  - Product use issue [Unknown]
